FAERS Safety Report 6134800-7 (Version None)
Quarter: 2009Q1

REPORT INFORMATION
  Report Type: 
  Country: None (occurrence: None)
  Receive Date: 20090325
  Receipt Date: 20090310
  Transmission Date: 20090719
  Serious: Yes (Hospitalization)
  Sender: FDA-Public Use
  Company Number: 8044076

PATIENT
  Age: 23 Year
  Sex: Female

DRUGS (1)
  1. KEPPRA [Suspect]
     Indication: EPILEPSY
     Dosage: 250 MEQ 2/D
     Dates: start: 20081101, end: 20090208

REACTIONS (4)
  - DRUG EXPOSURE DURING PREGNANCY [None]
  - GINGIVAL BLEEDING [None]
  - PETECHIAE [None]
  - THROMBOCYTOPENIA [None]
